FAERS Safety Report 17524763 (Version 1)
Quarter: 2020Q1

REPORT INFORMATION
  Report Type: Spontaneous
  Country: US (occurrence: US)
  Receive Date: 20200310
  Receipt Date: 20200310
  Transmission Date: 20200409
  Serious: No
  Sender: FDA-Public Use
  Company Number: None

PATIENT
  Age: 7 Year
  Sex: Female
  Weight: 36 kg

DRUGS (5)
  1. MONTELUKAST SOD 5MG TAB CHEW [Suspect]
     Active Substance: MONTELUKAST SODIUM
     Indication: COUGH
     Dosage: ?          QUANTITY:1 TABLET(S);?
     Route: 048
     Dates: start: 20200227, end: 20200307
  2. MONTELUKAST SOD 5MG TAB CHEW [Suspect]
     Active Substance: MONTELUKAST SODIUM
     Indication: MULTIPLE ALLERGIES
     Dosage: ?          QUANTITY:1 TABLET(S);?
     Route: 048
     Dates: start: 20200227, end: 20200307
  3. CLARITIN [Concomitant]
     Active Substance: LORATADINE
  4. ARNUITY ELLIPTA [Concomitant]
     Active Substance: FLUTICASONE FUROATE
  5. NASACORT [Concomitant]
     Active Substance: TRIAMCINOLONE ACETONIDE

REACTIONS (10)
  - Depression [None]
  - Paraesthesia [None]
  - Nightmare [None]
  - Morbid thoughts [None]
  - Anger [None]
  - Somnolence [None]
  - Irritability [None]
  - Muscle spasms [None]
  - Negative thoughts [None]
  - Anxiety [None]

NARRATIVE: CASE EVENT DATE: 20200228
